FAERS Safety Report 4450641-0 (Version None)
Quarter: 2004Q3

REPORT INFORMATION
  Report Type: 
  Country: None (occurrence: None)
  Receive Date: 20040914
  Receipt Date: 20040830
  Transmission Date: 20050211
  Serious: Yes (Other)
  Sender: FDA-Public Use
  Company Number: 2004048924

PATIENT
  Sex: Female

DRUGS (1)
  1. NEURONTIN [Suspect]
     Indication: NERVE INJURY
     Dosage: 2700 MG (300 MG,  UNKNOWN)

REACTIONS (3)
  - ABNORMAL BEHAVIOUR [None]
  - BLOOD TESTOSTERONE DECREASED [None]
  - LEGAL PROBLEM [None]
